FAERS Safety Report 13342976 (Version 2)
Quarter: 2017Q2

REPORT INFORMATION
  Report Type: Spontaneous
  Country: US (occurrence: US)
  Receive Date: 20170316
  Receipt Date: 20170531
  Transmission Date: 20170830
  Serious: Yes (Other)
  Sender: FDA-Public Use
  Company Number: US-BRISTOL-MYERS SQUIBB COMPANY-BMS-2017-021415

PATIENT
  Age: 76 Year
  Sex: Female
  Weight: 150 kg

DRUGS (1)
  1. ELIQUIS [Suspect]
     Active Substance: APIXABAN
     Indication: DEEP VEIN THROMBOSIS
     Dosage: 5 MG, BID
     Route: 048
     Dates: start: 20170307, end: 20170314

REACTIONS (3)
  - Gastrointestinal haemorrhage [Recovered/Resolved]
  - Prescribed underdose [Unknown]
  - Transfusion [Unknown]

NARRATIVE: CASE EVENT DATE: 20170314
